FAERS Safety Report 5160043-X (Version None)
Quarter: 2006Q4

REPORT INFORMATION
  Report Type: 
  Country: None (occurrence: None)
  Receive Date: 20061129
  Receipt Date: 20060803
  Transmission Date: 20070319
  Serious: No
  Sender: FDA-Public Use
  Company Number: US-GLAXOSMITHKLINE-A0615089A

PATIENT
  Sex: Male

DRUGS (2)
  1. WELLBUTRIN SR [Suspect]
     Indication: DEPRESSION
     Dosage: 400MG TWICE PER DAY
     Route: 048
     Dates: start: 20060731
  2. NEURONTIN [Concomitant]

REACTIONS (3)
  - AGITATION [None]
  - ANXIETY [None]
  - DRUG PRESCRIBING ERROR [None]
